FAERS Safety Report 11647488 (Version 1)
Quarter: 2015Q4

REPORT INFORMATION
  Report Type: Spontaneous
  Country: IE (occurrence: None)
  Receive Date: 20151020
  Receipt Date: 20151020
  Transmission Date: 20160304
  Serious: Yes (Death)
  Sender: FDA-Public Use
  Company Number: None

PATIENT
  Age: 95 Year
  Sex: Female
  Weight: 70 kg

DRUGS (2)
  1. RISPERDAL [Suspect]
     Active Substance: RISPERIDONE
     Indication: AGITATION
     Dosage: TAKEN BY MOUTH
     Dates: start: 20150606, end: 20150620
  2. RISPERDAL [Suspect]
     Active Substance: RISPERIDONE
     Indication: PRODUCT USED FOR UNKNOWN INDICATION
     Dosage: TAKEN BY MOUTH
     Dates: start: 20150606, end: 20150620

REACTIONS (4)
  - Decubitus ulcer [None]
  - Dry mouth [None]
  - Increased appetite [None]
  - Pharyngeal oedema [None]

NARRATIVE: CASE EVENT DATE: 20150625
